FAERS Safety Report 11419297 (Version 1)
Quarter: 2015Q3

REPORT INFORMATION
  Report Type: Spontaneous
  Country: DK (occurrence: DK)
  Receive Date: 20150826
  Receipt Date: 20150826
  Transmission Date: 20151125
  Serious: Yes (Hospitalization)
  Sender: FDA-Public Use
  Company Number: DK-ACTAVIS-2015-17666

PATIENT
  Age: 70 Year
  Sex: Female

DRUGS (6)
  1. QUETIAPIN ACTAVIS [Suspect]
     Active Substance: QUETIAPINE
     Indication: SCHIZOPHRENIA
     Dosage: 200 MG, DAILY
     Route: 048
     Dates: end: 20150809
  2. DELEPSINE [Suspect]
     Active Substance: DIVALPROEX SODIUM
     Indication: MOOD SWINGS
     Dosage: 900 MG, BID
     Route: 048
  3. PROPRANOLOL                        /00030002/ [Concomitant]
     Indication: TREMOR
     Dosage: UNK
     Route: 065
  4. AKINETON [Concomitant]
     Active Substance: BIPERIDEN HYDROCHLORIDE
     Indication: PARKINSONISM
     Dosage: UNK
     Route: 065
  5. LITIUMKARBONAT [Concomitant]
     Active Substance: LITHIUM CARBONATE
     Indication: BIPOLAR DISORDER
     Dosage: UNK
     Route: 065
  6. SEROQUEL [Suspect]
     Active Substance: QUETIAPINE FUMARATE
     Indication: SCHIZOPHRENIA
     Dosage: 800 MG, DAILY
     Route: 048

REACTIONS (3)
  - Gait disturbance [Recovering/Resolving]
  - Extrapyramidal disorder [Recovering/Resolving]
  - Leukopenia [Not Recovered/Not Resolved]

NARRATIVE: CASE EVENT DATE: 2015
